FAERS Safety Report 6760144-6 (Version None)
Quarter: 2010Q2

REPORT INFORMATION
  Report Type: 
  Country: None (occurrence: None)
  Receive Date: 20100608
  Receipt Date: 20100527
  Transmission Date: 20101027
  Serious: Yes (Other)
  Sender: FDA-Public Use
  Company Number: PHHY2009CA23254

PATIENT
  Sex: Female

DRUGS (1)
  1. ACLASTA [Suspect]
     Indication: OSTEOPOROSIS
     Dosage: 5 MG
     Dates: start: 20090603

REACTIONS (6)
  - ARTHRALGIA [None]
  - HEADACHE [None]
  - MUSCULOSKELETAL PAIN [None]
  - PAIN [None]
  - PAIN IN JAW [None]
  - SPINAL OSTEOARTHRITIS [None]
